FAERS Safety Report 10108897 (Version 1)
Quarter: 2014Q2

REPORT INFORMATION
  Report Type: Spontaneous
  Country: US (occurrence: US)
  Receive Date: 20140425
  Receipt Date: 20140425
  Transmission Date: 20141212
  Serious: No
  Sender: FDA-Public Use
  Company Number: 2014SP001257

PATIENT
  Age: 60 Year
  Sex: Female

DRUGS (5)
  1. ENBREL [Suspect]
     Dosage: UNK UNK, QWK
     Route: 065
     Dates: start: 20090514
  2. HUMIRA [Suspect]
     Dosage: UNK
     Route: 065
  3. METHOTREXATE [Suspect]
     Dosage: UNK
     Route: 065
     Dates: end: 201401
  4. RITUXAN [Suspect]
     Route: 065
  5. SIMPONI [Concomitant]
     Dosage: UNK

REACTIONS (4)
  - Drug ineffective [Recovered/Resolved]
  - Contusion [Recovered/Resolved]
  - Alopecia [Unknown]
  - Rash generalised [Recovered/Resolved]
